FAERS Safety Report 11857602 (Version 1)
Quarter: 2015Q4

REPORT INFORMATION
  Report Type: Spontaneous
  Country: US (occurrence: None)
  Receive Date: 20151221
  Receipt Date: 20151221
  Transmission Date: 20160305
  Serious: Yes (Hospitalization)
  Sender: FDA-Public Use
  Company Number: None

PATIENT
  Age: 67 Year
  Sex: Male
  Weight: 73 kg

DRUGS (2)
  1. IMATINIB [Suspect]
     Active Substance: IMATINIB
     Indication: COLOSTOMY
     Route: 048
     Dates: start: 20121206, end: 20151026
  2. HEPARIN [Suspect]
     Active Substance: HEPARIN SODIUM
     Indication: DEEP VEIN THROMBOSIS
     Route: 042
     Dates: end: 20151026

REACTIONS (10)
  - Gastritis alcoholic [None]
  - Portal hypertensive gastropathy [None]
  - Colon cancer [None]
  - Gastrointestinal haemorrhage [None]
  - Medical device complication [None]
  - Gastric haemorrhage [None]
  - Platelet count abnormal [None]
  - Deep vein thrombosis [None]
  - Rectal cancer [None]
  - Haemorrhagic anaemia [None]

NARRATIVE: CASE EVENT DATE: 20151019
